FAERS Safety Report 9013072 (Version 1)
Quarter: 2013Q1

REPORT INFORMATION
  Report Type: Spontaneous
  Country: US (occurrence: US)
  Receive Date: 20130115
  Receipt Date: 20130115
  Transmission Date: 20140127
  Serious: No
  Sender: FDA-Public Use
  Company Number: US-009507513-1301USA004326

PATIENT
  Sex: Male

DRUGS (2)
  1. JANUMET XR [Suspect]
     Dosage: 50/1000MG
  2. JANUMET [Suspect]
     Dosage: 50/1000MG

REACTIONS (1)
  - Drug name confusion [Unknown]
